FAERS Safety Report 5679922-X (Version None)
Quarter: 2008Q1

REPORT INFORMATION
  Report Type: 
  Country: None (occurrence: None)
  Receive Date: 20080324
  Receipt Date: 20080306
  Transmission Date: 20080703
  Serious: Yes (Hospitalization)
  Sender: FDA-Public Use
  Company Number: 8030761

PATIENT
  Age: 84 Year
  Sex: Female
  Weight: 82 kg

DRUGS (7)
  1. KEPPRA [Suspect]
     Dosage: 500 MG 2/D
     Dates: start: 20080101
  2. CARBAMAZEPINE [Concomitant]
  3. ASPIRIN [Concomitant]
  4. ATACAND [Concomitant]
  5. L-THYROXIN [Concomitant]
  6. DIURETIC AGENT [Concomitant]
  7. FERRO-SANOL B [Concomitant]

REACTIONS (1)
  - ANAEMIA [None]
